FAERS Safety Report 16661788 (Version 2)
Quarter: 2019Q3

REPORT INFORMATION
  Report Type: Spontaneous
  Country: RU (occurrence: RU)
  Receive Date: 20190802
  Receipt Date: 20190820
  Transmission Date: 20191004
  Serious: Yes (Other)
  Sender: FDA-Public Use
  Company Number: PHHY2019RU178176

PATIENT
  Sex: Female

DRUGS (4)
  1. CAPECITABINE. [Concomitant]
     Active Substance: CAPECITABINE
     Dosage: 2000 MG/M2, DAY 1-14, 5 CYCLES
     Route: 065
     Dates: start: 20150405, end: 20150712
  2. OXALIPLATIN. [Suspect]
     Active Substance: OXALIPLATIN
     Dosage: 130 MG/M2, ON DAY 1, 5 CYCLES
     Route: 065
     Dates: start: 20150405, end: 20150712
  3. OXALIPLATIN. [Suspect]
     Active Substance: OXALIPLATIN
     Indication: COLON CANCER
     Dosage: 130 MG/M2, ON DAY 1, 4 CYCLES
     Route: 065
     Dates: start: 20141217, end: 20150315
  4. CAPECITABINE. [Concomitant]
     Active Substance: CAPECITABINE
     Indication: COLON CANCER
     Dosage: 2000 MG/M2, DAY 1-14, FOUR CYCLES
     Route: 065
     Dates: start: 20141217, end: 20150315

REACTIONS (4)
  - Muscle contractions involuntary [Unknown]
  - Neurotoxicity [Unknown]
  - Paraesthesia [Unknown]
  - Peripheral sensory neuropathy [Unknown]

NARRATIVE: CASE EVENT DATE: 201507
